FAERS Safety Report 5456655-6 (Version None)
Quarter: 2007Q3

REPORT INFORMATION
  Report Type: 
  Country: None (occurrence: None)
  Receive Date: 20070918
  Receipt Date: 20070228
  Transmission Date: 20080115
  Serious: No
  Sender: FDA-Public Use
  Company Number: US-ASTRAZENECA-2006UW25416

PATIENT
  Sex: Male
  Weight: 104.5 kg

DRUGS (7)
  1. SEROQUEL [Suspect]
     Indication: MENTAL DISORDER
     Route: 048
     Dates: start: 20010601, end: 20030101
  2. RISPERDAL [Suspect]
     Dates: start: 20030101
  3. ZYPREXA [Suspect]
     Dates: start: 20010101
  4. GEODON [Concomitant]
     Dates: start: 20030101, end: 20070101
  5. HALDOL [Concomitant]
     Dates: start: 20060101
  6. CYMBALTA [Concomitant]
     Dates: start: 20060101
  7. ABILIFY [Concomitant]
     Dates: start: 20060101

REACTIONS (2)
  - DIABETES MELLITUS [None]
  - OBSESSIVE-COMPULSIVE DISORDER [None]
